FAERS Safety Report 9430225 (Version 2)
Quarter: 2013Q3

REPORT INFORMATION
  Report Type: Spontaneous
  Country: US (occurrence: US)
  Receive Date: 20130730
  Receipt Date: 20130802
  Transmission Date: 20140515
  Serious: Yes (Hospitalization)
  Sender: FDA-Public Use
  Company Number: US-BAXTER-2013BAX029213

PATIENT
  Sex: Female

DRUGS (1)
  1. DIANEAL LOW CALCIUM (ULTRABAG) [Suspect]
     Indication: PERITONEAL DIALYSIS
     Route: 033
     Dates: start: 2012

REACTIONS (6)
  - Swelling [Recovering/Resolving]
  - Stress [Not Recovered/Not Resolved]
  - Breast swelling [Recovering/Resolving]
  - Abdominal distension [Recovering/Resolving]
  - Abnormal weight gain [Recovering/Resolving]
  - Local swelling [Recovering/Resolving]
